FAERS Safety Report 8161995-6 (Version None)
Quarter: 2012Q1

REPORT INFORMATION
  Report Type: 
  Country: None (occurrence: None)
  Receive Date: 20120224
  Receipt Date: 20111130
  Transmission Date: 20120608
  Serious: No
  Sender: FDA-Public Use
  Company Number: US-BRISTOL-MYERS SQUIBB COMPANY-16239493

PATIENT
  Age: 50 Year
  Sex: Female

DRUGS (1)
  1. METFORMIN HCL [Suspect]
     Indication: TYPE 2 DIABETES MELLITUS
     Dosage: INITIAL DOSE: 2  500MG TABLETS.DOSE INCRESED TO 4  500MG TABLETS.
     Route: 048
     Dates: start: 20100101

REACTIONS (4)
  - SLUGGISHNESS [None]
  - FATIGUE [None]
  - NAUSEA [None]
  - DRUG INEFFECTIVE [None]
